FAERS Safety Report 16702391 (Version 1)
Quarter: 2019Q3

REPORT INFORMATION
  Report Type: Spontaneous
  Country: US (occurrence: US)
  Receive Date: 20190814
  Receipt Date: 20190814
  Transmission Date: 20191004
  Serious: No
  Sender: FDA-Public Use
  Company Number: US-MYLANLABS-2019M1073397

PATIENT
  Age: 61 Year
  Sex: Male

DRUGS (1)
  1. PROCTOFOAM HC [Suspect]
     Active Substance: HYDROCORTISONE ACETATE\PRAMOXINE HYDROCHLORIDE
     Indication: PROCTITIS
     Dosage: UNK, 3 TO 4 TIMES DAILY
     Route: 054
     Dates: start: 20190723

REACTIONS (2)
  - Device issue [Unknown]
  - Off label use [Unknown]

NARRATIVE: CASE EVENT DATE: 2019
